FAERS Safety Report 23522779 (Version 1)
Quarter: 2024Q1

REPORT INFORMATION
  Report Type: Spontaneous
  Country: US (occurrence: None)
  Receive Date: 20240213
  Receipt Date: 20240213
  Transmission Date: 20240410
  Serious: Yes (unspecified)
  Sender: FDA-Public Use
  Company Number: None

PATIENT
  Age: 69 Year
  Sex: Male
  Weight: 74.25 kg

DRUGS (2)
  1. DEXTENZA [Suspect]
     Active Substance: DEXAMETHASONE
     Indication: Cataract operation complication
     Dates: start: 20240206
  2. DEXTENZA [Suspect]
     Active Substance: DEXAMETHASONE
     Indication: Inflammation

REACTIONS (3)
  - Blood pressure increased [None]
  - Product label issue [None]
  - Product communication issue [None]

NARRATIVE: CASE EVENT DATE: 20240213
